FAERS Safety Report 12426734 (Version 3)
Quarter: 2016Q3

REPORT INFORMATION
  Report Type: Report from Study
  Country: DE (occurrence: DE)
  Receive Date: 20160601
  Receipt Date: 20160819
  Transmission Date: 20161109
  Serious: Yes (Hospitalization)
  Sender: FDA-Public Use
  Company Number: DE-ROCHE-1765773

PATIENT
  Age: 76 Year
  Sex: Male
  Weight: 65 kg

DRUGS (19)
  1. METFORMIN [Concomitant]
     Active Substance: METFORMIN HYDROCHLORIDE
     Route: 065
     Dates: start: 20160528
  2. CETIRIZIN [Concomitant]
     Active Substance: CETIRIZINE HYDROCHLORIDE
     Route: 065
     Dates: start: 20160428
  3. XIGDUO XR [Concomitant]
     Active Substance: DAPAGLIFLOZIN PROPANEDIOL\METFORMIN HYDROCHLORIDE
     Dosage: XIGDUO (METFORMIN)
     Route: 065
     Dates: end: 20160527
  4. NOVORAPID [Concomitant]
     Active Substance: INSULIN ASPART
     Dosage: BOLUS INSULIN
     Route: 065
     Dates: start: 20160528
  5. PANTOPRAZOLE [Concomitant]
     Active Substance: PANTOPRAZOLE SODIUM
     Route: 065
     Dates: start: 20160527
  6. CANDESARTAN ZENTIVA [Concomitant]
  7. COBIMETINIB [Suspect]
     Active Substance: COBIMETINIB
     Indication: MALIGNANT MELANOMA
     Dosage: DATE OF LAST DOSE PRIOR TO SAE: 26/MAY/2016, DRUG INTERRUPTED
     Route: 048
     Dates: start: 20160415, end: 20160527
  8. AMLODIPIN [Concomitant]
     Active Substance: AMLODIPINE BESYLATE
  9. TRICLOSAN. [Concomitant]
     Active Substance: TRICLOSAN
     Dosage: CREAM
     Route: 065
     Dates: start: 20160428
  10. VEMURAFENIB [Suspect]
     Active Substance: VEMURAFENIB
     Indication: MALIGNANT MELANOMA
     Dosage: DATE OF LAST DOSE PRIOR TO SAE: 26/MAY/2016, DRUG INTERRUPTED
     Route: 048
     Dates: start: 20160415, end: 20160527
  11. XIGDUO XR [Concomitant]
     Active Substance: DAPAGLIFLOZIN PROPANEDIOL\METFORMIN HYDROCHLORIDE
     Dosage: XIGDUO (DAPAGLIFLOZIN)
     Route: 065
     Dates: end: 20160527
  12. IRENAT [Concomitant]
     Active Substance: SODIUM PERCHLORATE MONOHYDRATE
     Dosage: 60 DROPS
     Route: 065
     Dates: start: 20160411
  13. BETAGALEN [Concomitant]
     Dosage: CREAM
     Route: 065
     Dates: start: 20160428
  14. HYDROCORTISON [Concomitant]
     Active Substance: HYDROCORTISONE
     Dosage: CREAM
     Route: 065
     Dates: start: 20160428
  15. THESIT [Concomitant]
     Route: 065
     Dates: start: 20160512
  16. LANTUS [Concomitant]
     Active Substance: INSULIN GLARGINE
     Dosage: 10 I.E
     Route: 065
     Dates: start: 20160528
  17. CARBIMAZOL [Concomitant]
     Active Substance: CARBIMAZOLE
     Route: 065
     Dates: start: 20160708
  18. RANITIDIN [Concomitant]
     Active Substance: RANITIDINE HYDROCHLORIDE
     Route: 065
     Dates: start: 20160525
  19. LANTUS [Concomitant]
     Active Substance: INSULIN GLARGINE
     Dosage: 10 I.E
     Route: 065
     Dates: start: 20160527, end: 20160527

REACTIONS (2)
  - Acute kidney injury [Recovered/Resolved]
  - Blood creatinine increased [Not Recovered/Not Resolved]

NARRATIVE: CASE EVENT DATE: 20160504
